FAERS Safety Report 17273863 (Version 1)
Quarter: 2020Q1

REPORT INFORMATION
  Report Type: Spontaneous
  Country: US (occurrence: US)
  Receive Date: 20191224
  Receipt Date: 20191224
  Transmission Date: 20200409
  Serious: No
  Sender: FDA-Public Use
  Company Number: None

PATIENT
  Age: 56 Year
  Sex: Male
  Weight: 77 kg

DRUGS (2)
  1. PALIPERIDONE. [Suspect]
     Active Substance: PALIPERIDONE
     Indication: BIPOLAR DISORDER
     Route: 048
     Dates: start: 20180912, end: 20191025
  2. PALIPERIDONE. [Suspect]
     Active Substance: PALIPERIDONE
     Indication: MANIA

REACTIONS (4)
  - Depression [None]
  - Sedation [None]
  - Blood prolactin increased [None]
  - Stress [None]

NARRATIVE: CASE EVENT DATE: 20191023
